FAERS Safety Report 17444791 (Version 1)
Quarter: 2020Q1

REPORT INFORMATION
  Report Type: Spontaneous
  Country: US (occurrence: US)
  Receive Date: 20200221
  Receipt Date: 20200221
  Transmission Date: 20200409
  Serious: No
  Sender: FDA-Public Use
  Company Number: US-TEVA-2020-US-1187150

PATIENT
  Sex: Female

DRUGS (1)
  1. ADIPEX-P [Suspect]
     Active Substance: PHENTERMINE HYDROCHLORIDE
     Indication: OBESITY
     Dosage: 37.5 MILLIGRAM DAILY;
     Route: 065
     Dates: start: 201806

REACTIONS (2)
  - Drug ineffective [Unknown]
  - Appetite disorder [Unknown]
